FAERS Safety Report 6418029-0 (Version None)
Quarter: 2009Q4

REPORT INFORMATION
  Report Type: 
  Country: None (occurrence: None)
  Receive Date: 20091028
  Receipt Date: 20091016
  Transmission Date: 20100525
  Serious: Yes (Death)
  Sender: FDA-Public Use
  Company Number: KR-PFIZER INC-2009284613

PATIENT
  Age: 12 Year

DRUGS (8)
  1. VORICONAZOLE [Suspect]
     Indication: ASPERGILLOSIS
     Dosage: 100 MG, 2X/DAY
     Route: 048
     Dates: start: 20080821, end: 20081002
  2. VORICONAZOLE [Suspect]
     Dosage: 100 MG, 1X/DAY
     Route: 048
     Dates: start: 20081003, end: 20081018
  3. PHENOBARBITAL [Concomitant]
     Indication: ANXIETY
     Dosage: 30 MG, 2X/DAY
     Route: 048
     Dates: start: 20081002, end: 20081018
  4. METHYLPREDNISOLONE [Concomitant]
     Indication: PROPHYLAXIS
     Dosage: 15 MG, 2X/DAY
     Route: 042
     Dates: start: 20080514, end: 20081016
  5. NORMAL HUMAN IMMUNOGLOBULIN [Concomitant]
     Indication: PROPHYLAXIS
     Dosage: 12 G, 1X/DAY
     Route: 041
     Dates: start: 20080803, end: 20081014
  6. MEROPENEM [Concomitant]
     Indication: SEPSIS
     Dosage: 500 MG, 3X/DAY
     Route: 042
     Dates: start: 20080708, end: 20081018
  7. RIFAXIMIN [Concomitant]
     Indication: SEPSIS
     Dosage: 200 MG, 3X/DAY
     Route: 048
     Dates: start: 20081002, end: 20081018
  8. TEICOPLANIN [Concomitant]
     Indication: SEPSIS
     Dosage: 180 MG, 1X/DAY
     Route: 042
     Dates: start: 20080713, end: 20081018

REACTIONS (1)
  - DEATH [None]
